FAERS Safety Report 20319411 (Version 8)
Quarter: 2022Q4

REPORT INFORMATION
  Report Type: Report from Study
  Country: CA (occurrence: CA)
  Receive Date: 20220110
  Receipt Date: 20221107
  Transmission Date: 20230113
  Serious: Yes (Hospitalization, Other)
  Sender: FDA-Public Use
  Company Number: CA-JNJFOC-20210960508

PATIENT
  Age: 72 Year
  Sex: Male

DRUGS (3)
  1. REMICADE [Suspect]
     Active Substance: INFLIXIMAB
     Indication: Crohn^s disease
     Route: 042
     Dates: start: 20090601
  2. REMICADE [Suspect]
     Active Substance: INFLIXIMAB
     Dosage: ANOTHER THERAPY START DATE 24/JAN/2020?ADDITIONAL EXPIRY DATE: 01-JAN-2025
     Route: 042
     Dates: start: 20101027
  3. REMICADE [Suspect]
     Active Substance: INFLIXIMAB
     Dosage: EXPIRATION DATE 31-OCT-2024
     Route: 042

REACTIONS (11)
  - Clostridium difficile infection [Unknown]
  - Renal disorder [Unknown]
  - Coronary artery occlusion [Unknown]
  - Vertigo [Unknown]
  - Crohn^s disease [Unknown]
  - Fatigue [Unknown]
  - Drug specific antibody present [Unknown]
  - Confusional state [Unknown]
  - Hangover [Unknown]
  - Drug level decreased [Unknown]
  - Off label use [Unknown]

NARRATIVE: CASE EVENT DATE: 20211101
